FAERS Safety Report 14104656 (Version 2)
Quarter: 2018Q2

REPORT INFORMATION
  Report Type: Spontaneous
  Country: US (occurrence: US)
  Receive Date: 20171018
  Receipt Date: 20180411
  Transmission Date: 20180711
  Serious: No
  Sender: FDA-Public Use
  Company Number: US-AMGEN-USASP2017129646

PATIENT
  Age: 75 Year
  Sex: Female

DRUGS (5)
  1. VITAMIN D [Concomitant]
     Active Substance: CHOLECALCIFEROL
     Dosage: UNK
  2. LOSARTAN. [Concomitant]
     Active Substance: LOSARTAN
     Dosage: UNK
  3. PROLIA [Suspect]
     Active Substance: DENOSUMAB
     Indication: OSTEOPOROSIS POSTMENOPAUSAL
     Dosage: UNK
     Route: 065
     Dates: start: 201706
  4. CALCIUM [Concomitant]
     Active Substance: CALCIUM
     Dosage: UNK
  5. ALEVE [Concomitant]
     Active Substance: NAPROXEN SODIUM
     Indication: HEADACHE
     Dosage: UNK

REACTIONS (22)
  - Visual impairment [Not Recovered/Not Resolved]
  - Cardiovascular disorder [Unknown]
  - Skin haemorrhage [Unknown]
  - Muscle spasms [Unknown]
  - Pancreatic cyst [Unknown]
  - Asthenia [Unknown]
  - Oedema peripheral [Unknown]
  - Hypoacusis [Not Recovered/Not Resolved]
  - Eye disorder [Unknown]
  - Hernia [Unknown]
  - Rash [Recovered/Resolved]
  - Cough [Unknown]
  - Headache [Unknown]
  - Gait disturbance [Unknown]
  - Arthralgia [Unknown]
  - Pain in extremity [Unknown]
  - Oropharyngeal discomfort [Unknown]
  - Dizziness [Unknown]
  - Musculoskeletal discomfort [Unknown]
  - Rhinorrhoea [Unknown]
  - Influenza [Unknown]
  - Gastrooesophageal reflux disease [Unknown]

NARRATIVE: CASE EVENT DATE: 2017
